FAERS Safety Report 15627561 (Version 2)
Quarter: 2018Q4

REPORT INFORMATION
  Report Type: Report from Study
  Country: GB (occurrence: GB)
  Receive Date: 20181116
  Receipt Date: 20181120
  Transmission Date: 20190205
  Serious: Yes (Disabling, Other)
  Sender: FDA-Public Use
  Company Number: GB-JNJFOC-20181120629

PATIENT
  Age: 59 Year
  Sex: Female
  Weight: 65.7 kg

DRUGS (12)
  1. URSODEOXYCHOLIC ACID [Concomitant]
     Active Substance: URSODIOL
     Route: 065
  2. LEVOTHYROXINE. [Concomitant]
     Active Substance: LEVOTHYROXINE
     Route: 065
     Dates: start: 20000715
  3. DOUBLEBASE [Concomitant]
     Active Substance: ISOPROPYL MYRISTATE\PARAFFIN
     Route: 065
     Dates: start: 20120802
  4. URSODEOXYCHOLIC ACID [Concomitant]
     Active Substance: URSODIOL
     Route: 065
     Dates: start: 19950715
  5. DOVOBET [Concomitant]
     Active Substance: BETAMETHASONE\CALCIPOTRIENE
     Route: 065
     Dates: start: 20000715
  6. ETORICOXIB. [Concomitant]
     Active Substance: ETORICOXIB
     Route: 065
     Dates: start: 20050715
  7. DOVOBET [Concomitant]
     Active Substance: BETAMETHASONE\CALCIPOTRIENE
     Route: 065
  8. ETORICOXIB. [Concomitant]
     Active Substance: ETORICOXIB
     Route: 065
  9. ARCOXIA [Concomitant]
     Active Substance: ETORICOXIB
     Route: 065
     Dates: start: 20120418
  10. FEXOFENADINE [Concomitant]
     Active Substance: FEXOFENADINE\FEXOFENADINE HYDROCHLORIDE
     Route: 065
     Dates: start: 20130409
  11. LEVOTHYROXINE. [Concomitant]
     Active Substance: LEVOTHYROXINE
     Route: 065
  12. STELARA [Suspect]
     Active Substance: USTEKINUMAB
     Indication: PSORIASIS
     Route: 058
     Dates: start: 20110421

REACTIONS (2)
  - Toxoplasmosis [Not Recovered/Not Resolved]
  - Autoimmune hepatitis [Not Recovered/Not Resolved]

NARRATIVE: CASE EVENT DATE: 20171111
